FAERS Safety Report 21544631 (Version 1)
Quarter: 2022Q4

REPORT INFORMATION
  Report Type: Spontaneous
  Country: US (occurrence: None)
  Receive Date: 20221101
  Receipt Date: 20221101
  Transmission Date: 20230113
  Serious: No
  Sender: FDA-Public Use
  Company Number: None

PATIENT
  Age: 40 Year
  Sex: Male
  Weight: 58.5 kg

DRUGS (3)
  1. EPCLUSA [Suspect]
     Active Substance: SOFOSBUVIR\VELPATASVIR
     Indication: Hepatitis C
     Dosage: FREQUENCY : DAILY;?
     Route: 048
  2. riobavirin [Concomitant]
     Dates: start: 20221007
  3. XIFAXAN [Concomitant]
     Active Substance: RIFAXIMIN
     Dates: start: 20220810

REACTIONS (1)
  - Vomiting [None]

NARRATIVE: CASE EVENT DATE: 20221017
